FAERS Safety Report 6840694-4 (Version None)
Quarter: 2010Q3

REPORT INFORMATION
  Report Type: 
  Country: None (occurrence: None)
  Receive Date: 20100714
  Receipt Date: 20100708
  Transmission Date: 20110219
  Serious: Yes (Death, Hospitalization)
  Sender: FDA-Public Use
  Company Number: GB-ELI_LILLY_AND_COMPANY-GB201007001646

PATIENT
  Sex: Female

DRUGS (2)
  1. ALIMTA [Suspect]
     Indication: ADENOCARCINOMA
     Dosage: UNK, UNK
     Dates: start: 20100610
  2. CISPLATIN [Concomitant]
     Indication: ADENOCARCINOMA
     Dosage: UNK, UNKNOWN
     Route: 065
     Dates: start: 20100610

REACTIONS (3)
  - DEATH [None]
  - ISCHAEMIA [None]
  - RENAL IMPAIRMENT [None]
